FAERS Safety Report 4961848-8 (Version None)
Quarter: 2006Q2

REPORT INFORMATION
  Report Type: 
  Country: None (occurrence: None)
  Receive Date: 20060404
  Receipt Date: 20060324
  Transmission Date: 20061013
  Serious: Yes (Hospitalization)
  Sender: FDA-Public Use
  Company Number: PHHO2006CL04950

PATIENT
  Sex: Male

DRUGS (2)
  1. ZELMAC / HTF 919A [Suspect]
     Route: 048
  2. MORFIN [Concomitant]

REACTIONS (3)
  - BRONCHOPNEUMONIA [None]
  - EMPHYSEMA [None]
  - RENAL DISORDER [None]
